FAERS Safety Report 9603260 (Version 2)
Quarter: 2013Q4

REPORT INFORMATION
  Report Type: Report from Study
  Country: US (occurrence: US)
  Receive Date: 20131007
  Receipt Date: 20131021
  Transmission Date: 20140711
  Serious: Yes (Other)
  Sender: FDA-Public Use
  Company Number: US-ACTELION-A-NJ2013-89337

PATIENT
  Age: 47 Year
  Sex: Female

DRUGS (2)
  1. VELETRI [Suspect]
     Indication: PULMONARY ARTERIAL HYPERTENSION
     Dosage: 26 NG/KG, PER MIN
     Route: 042
     Dates: start: 20110711
  2. ADCIRCA [Concomitant]

REACTIONS (3)
  - Tooth abscess [Recovering/Resolving]
  - Tooth extraction [Recovering/Resolving]
  - Alopecia [Unknown]
